FAERS Safety Report 20112230 (Version 7)
Quarter: 2022Q2

REPORT INFORMATION
  Report Type: Spontaneous
  Country: CA (occurrence: CA)
  Receive Date: 20211125
  Receipt Date: 20220610
  Transmission Date: 20220720
  Serious: Yes (Other)
  Sender: FDA-Public Use
  Company Number: CA-CELLTRION INC.-2021CA015227

PATIENT

DRUGS (11)
  1. INFLECTRA [Suspect]
     Active Substance: INFLIXIMAB-DYYB
     Indication: Colitis ulcerative
     Dosage: 450 MG, (AT WEEK 0, 2 AND 6 THEN Q 8 WEEKS)
     Route: 042
     Dates: start: 20211005
  2. INFLECTRA [Suspect]
     Active Substance: INFLIXIMAB-DYYB
     Dosage: 450 MG, (AT WEEK 0, 2 AND 6 THEN Q 8 WEEKS)
     Route: 042
     Dates: start: 20211104
  3. INFLECTRA [Suspect]
     Active Substance: INFLIXIMAB-DYYB
     Dosage: 450 MG, (AT WEEK 0, 2 AND 6 THEN Q 8 WEEKS)
     Route: 042
     Dates: start: 20211104
  4. INFLECTRA [Suspect]
     Active Substance: INFLIXIMAB-DYYB
     Dosage: 450 MG, (AT WEEK 0, 2 AND 6 THEN Q 8 WEEKS)
     Route: 042
     Dates: start: 20211230
  5. INFLECTRA [Suspect]
     Active Substance: INFLIXIMAB-DYYB
     Dosage: 450 MG, (AT WEEK 0, 2 AND 6 THEN Q 8 WEEKS)
     Route: 042
     Dates: start: 20220225
  6. INFLECTRA [Suspect]
     Active Substance: INFLIXIMAB-DYYB
     Dosage: 450 MG, (AT WEEK 0, 2 AND 6 THEN Q 8 WEEKS)
     Route: 042
     Dates: start: 20220418
  7. INFLECTRA [Suspect]
     Active Substance: INFLIXIMAB-DYYB
     Dosage: 450 MG, EVERY 6 WEEKS
     Route: 042
     Dates: start: 20220531
  8. DIMENHYDRINATE [Concomitant]
     Active Substance: DIMENHYDRINATE
     Indication: Premedication
     Dosage: 50 MG, (PIV)
     Route: 042
     Dates: start: 20211104, end: 20211104
  9. DIPHENHYDRAMINE [Concomitant]
     Active Substance: DIPHENHYDRAMINE
     Indication: Premedication
     Dosage: 25 MG, (PIV)
     Route: 042
     Dates: start: 20211104, end: 20211104
  10. PREDNISONE [Concomitant]
     Active Substance: PREDNISONE
     Dosage: UNK
  11. SOLU-CORTEF [Concomitant]
     Active Substance: HYDROCORTISONE SODIUM SUCCINATE
     Indication: Premedication
     Dosage: 100 MG, (PIV)
     Route: 042
     Dates: start: 20211104, end: 20211104

REACTIONS (12)
  - Malignant neoplasm progression [Not Recovered/Not Resolved]
  - Hypertension [Unknown]
  - Off label use [Unknown]
  - Off label use [Unknown]
  - Arthralgia [Unknown]
  - Thermal burn [Not Recovered/Not Resolved]
  - Blister [Not Recovered/Not Resolved]
  - Feeding disorder [Not Recovered/Not Resolved]
  - Weight decreased [Unknown]
  - Pruritus [Not Recovered/Not Resolved]
  - Condition aggravated [Recovering/Resolving]
  - Abdominal pain [Not Recovered/Not Resolved]

NARRATIVE: CASE EVENT DATE: 20211101
